FAERS Safety Report 14133151 (Version 2)
Quarter: 2018Q3

REPORT INFORMATION
  Report Type: Spontaneous
  Country: GB (occurrence: GB)
  Receive Date: 20171026
  Receipt Date: 20180801
  Transmission Date: 20181010
  Serious: Yes (Other)
  Sender: FDA-Public Use
  Company Number: GB-ASTRAZENECA-2017SF08188

PATIENT
  Age: 65 Year
  Sex: Female
  Weight: 87 kg

DRUGS (15)
  1. AQUEOUS CREAM [Concomitant]
     Dosage: USE AS MOISTURISER AND SOAP
     Dates: start: 20170830, end: 20170927
  2. ATORVASTATIN [Concomitant]
     Active Substance: ATORVASTATIN
     Dosage: 1 DF EACH EVENING
     Dates: start: 20170707
  3. CLOTRIMAZOLE. [Concomitant]
     Active Substance: CLOTRIMAZOLE
     Dosage: USE AS DIRECTED
     Dates: start: 20170823, end: 20170824
  4. CETIRIZINE [Concomitant]
     Active Substance: CETIRIZINE HYDROCHLORIDE
     Dosage: 1 DF, TAKE ONE EACH MORNING WHEN NEEDED
     Dates: start: 20170913
  5. CITALOPRAM [Concomitant]
     Active Substance: CITALOPRAM HYDROBROMIDE
     Dosage: 1 DF, EACH MORNING
     Dates: start: 20170707
  6. DORZOLAMIDE HYDROCHLORIDE. [Concomitant]
     Active Substance: DORZOLAMIDE HYDROCHLORIDE
     Dosage: 1 DF, EVERY DAY
     Dates: start: 20170707
  7. PROPRANOLOL [Concomitant]
     Active Substance: PROPRANOLOL HYDROCHLORIDE
     Dosage: TAKE ONE 3 TIMES/DAY IF NEEDED
     Dates: start: 20170707
  8. HUMALOG [Concomitant]
     Active Substance: INSULIN LISPRO
     Dosage: USE AS DIRECTED
     Dates: start: 20170707
  9. HYLO?FORTE [Concomitant]
     Active Substance: HYALURONATE SODIUM
     Dosage: APPLY TWICE A DAY TO BOTH EYES
     Dates: start: 20170707
  10. HYDROCORTISONE. [Concomitant]
     Active Substance: HYDROCORTISONE
     Dosage: APPLY TO THE AFFECTED AREAS
     Dates: start: 20170927, end: 20171007
  11. LIRAGLUTIDE [Concomitant]
     Active Substance: LIRAGLUTIDE
     Dosage: USE AS DIRECTED
     Dates: start: 20170707
  12. DAPAGLIFLOZIN. [Suspect]
     Active Substance: DAPAGLIFLOZIN
     Indication: TYPE 2 DIABETES MELLITUS
     Dosage: UNKNWN DOSE10.0MG UNKNOWN
     Route: 048
     Dates: start: 20170815, end: 20170908
  13. BENDROFLUMETHIAZIDE [Concomitant]
     Active Substance: BENDROFLUMETHIAZIDE
     Dosage: 1 DF, EACH MORNING
     Dates: start: 20170707
  14. METFORMIN [Concomitant]
     Active Substance: METFORMIN HYDROCHLORIDE
     Dosage: 1 DF , EVERY DAY
     Dates: start: 20170925
  15. RAMIPRIL. [Concomitant]
     Active Substance: RAMIPRIL
     Dosage: 1 DF EACH MORNING
     Dates: start: 20170707

REACTIONS (5)
  - Skin abrasion [Recovering/Resolving]
  - Vulvovaginal erythema [Recovering/Resolving]
  - Pruritus [Recovering/Resolving]
  - Vulvovaginal pain [Unknown]
  - Pruritus generalised [Recovering/Resolving]

NARRATIVE: CASE EVENT DATE: 20170823
